FAERS Safety Report 7279023-3 (Version None)
Quarter: 2011Q1

REPORT INFORMATION
  Report Type: 
  Country: None (occurrence: None)
  Receive Date: 20110207
  Receipt Date: 20110127
  Transmission Date: 20110831
  Serious: Yes (Other)
  Sender: FDA-Public Use
  Company Number: PHHY2010US79064

PATIENT
  Sex: Female
  Weight: 56 kg

DRUGS (6)
  1. FOLIC ACID [Concomitant]
     Indication: HAEMOLYSIS
     Dosage: UNK
     Route: 048
  2. HYDROXYUREA [Concomitant]
     Indication: SICKLE CELL ANAEMIA
     Dosage: 500 MG DAILY
     Route: 048
  3. EXJADE [Suspect]
     Indication: SICKLE CELL ANAEMIA
     Dosage: 1000 MG
     Route: 048
  4. EXJADE [Suspect]
     Indication: IRON OVERLOAD
     Dosage: 500 MG, QW3
     Route: 048
     Dates: start: 20080404, end: 20081222
  5. EXJADE [Suspect]
     Dosage: 500 MG,QD ON MON, WED AND FRI
     Route: 048
     Dates: start: 20090701
  6. LORCET-HD [Concomitant]
     Indication: PAIN
     Dosage: 650 MG PARA AND 10 MG HYDR, Q 4 HRS PRN
     Route: 048

REACTIONS (3)
  - SERUM FERRITIN DECREASED [None]
  - IRON DEFICIENCY [None]
  - ANAEMIA [None]
